FAERS Safety Report 7883749-8 (Version None)
Quarter: 2011Q4

REPORT INFORMATION
  Report Type: 
  Country: None (occurrence: None)
  Receive Date: 20111031
  Receipt Date: 20111018
  Transmission Date: 20120403
  Serious: No
  Sender: FDA-Public Use
  Company Number: 2011P1009612

PATIENT
  Age: 2 Year
  Sex: Female

DRUGS (5)
  1. VINCRISTINE [Concomitant]
  2. PEGYLATED ASPARAGINASE [Concomitant]
  3. DEXAMETHASONE [Suspect]
     Indication: ACUTE LYMPHOCYTIC LEUKAEMIA
     Dosage: PER PROTOCOL;
  4. DAUNORUBICIN HCL [Concomitant]
  5. METHOTREXATE [Concomitant]

REACTIONS (3)
  - OESOPHAGEAL STENOSIS [None]
  - CANDIDIASIS [None]
  - PNEUMONIA [None]
